FAERS Safety Report 18510819 (Version 1)
Quarter: 2020Q4

REPORT INFORMATION
  Report Type: Spontaneous
  Country: US (occurrence: US)
  Receive Date: 20201117
  Receipt Date: 20201117
  Transmission Date: 20210114
  Serious: No
  Sender: FDA-Public Use
  Company Number: US-ALLERGAN-2025539US

PATIENT
  Sex: Female

DRUGS (5)
  1. ALPHAGAN P [Concomitant]
     Active Substance: BRIMONIDINE TARTRATE
  2. COMBIGAN [Suspect]
     Active Substance: BRIMONIDINE TARTRATE\TIMOLOL MALEATE
     Indication: GLAUCOMA
     Dosage: 3 DROPS IN RIGHT EYE QD, 1 DROP IN LEFT EYE QD
     Route: 047
  3. TRAVATAN [Concomitant]
     Active Substance: TRAVOPROST
  4. LUMIGAN [Concomitant]
     Active Substance: BIMATOPROST
  5. SYNTHROID [Concomitant]
     Active Substance: LEVOTHYROXINE SODIUM
     Dosage: 0.5 MG, QD

REACTIONS (2)
  - Incorrect dose administered [Unknown]
  - Product storage error [Unknown]
